FAERS Safety Report 17074878 (Version 1)
Quarter: 2019Q4

REPORT INFORMATION
  Report Type: Spontaneous
  Country: US (occurrence: US)
  Receive Date: 20191126
  Receipt Date: 20191126
  Transmission Date: 20200122
  Serious: Yes (Other)
  Sender: FDA-Public Use
  Company Number: US-BAYER-2019-212597

PATIENT
  Sex: Female

DRUGS (1)
  1. KYLEENA [Suspect]
     Active Substance: LEVONORGESTREL
     Dosage: 17.5 MCG/24HR, CONT
     Route: 015
     Dates: start: 201905

REACTIONS (5)
  - Abdominal distension [None]
  - Abdominal pain lower [None]
  - Device issue [None]
  - Genital haemorrhage [None]
  - Pelvic pain [None]

NARRATIVE: CASE EVENT DATE: 2019
